FAERS Safety Report 18523782 (Version 1)
Quarter: 2020Q4

REPORT INFORMATION
  Report Type: Other
  Country: DE (occurrence: DE)
  Receive Date: 20201119
  Receipt Date: 20201119
  Transmission Date: 20210114
  Serious: No
  Sender: FDA-Public Use
  Company Number: DE-LUPIN PHARMACEUTICALS INC.-2020-01276

PATIENT
  Age: 15 Year
  Sex: Female
  Weight: 44 kg

DRUGS (2)
  1. SERTRALINE HYDROCHLORIDE TABLETS [Suspect]
     Active Substance: SERTRALINE HYDROCHLORIDE
     Indication: OBSESSIVE-COMPULSIVE DISORDER
     Dosage: 25-50 MG, UNK
     Route: 048
     Dates: start: 20200110, end: 20200220
  2. SERTRALINE HYDROCHLORIDE TABLETS [Suspect]
     Active Substance: SERTRALINE HYDROCHLORIDE
     Indication: DEPRESSION

REACTIONS (1)
  - White blood cell count decreased [Unknown]

NARRATIVE: CASE EVENT DATE: 20200220
